FAERS Safety Report 5587035-0 (Version None)
Quarter: 2008Q1

REPORT INFORMATION
  Report Type: 
  Country: None (occurrence: None)
  Receive Date: 20080110
  Receipt Date: 20080103
  Transmission Date: 20080703
  Serious: Yes (Other)
  Sender: FDA-Public Use
  Company Number: B0359812A

PATIENT
  Age: 57 Year
  Sex: Female

DRUGS (2)
  1. SEROXAT [Suspect]
     Dosage: 20MG PER DAY
     Route: 065
     Dates: start: 19970416, end: 20040629
  2. AMITRIPTYLINE HCL [Concomitant]
     Dates: start: 19881010

REACTIONS (9)
  - AGGRESSION [None]
  - BEDRIDDEN [None]
  - BURNING SENSATION [None]
  - DIZZINESS [None]
  - DRUG WITHDRAWAL SYNDROME [None]
  - MUSCLE CONTRACTIONS INVOLUNTARY [None]
  - MUSCLE SPASMS [None]
  - PAIN [None]
  - PARAESTHESIA [None]
